FAERS Safety Report 9238268 (Version 2)
Quarter: 2013Q2

REPORT INFORMATION
  Report Type: Spontaneous
  Country: US (occurrence: US)
  Receive Date: 20130418
  Receipt Date: 20130523
  Transmission Date: 20140414
  Serious: Yes (Other)
  Sender: FDA-Public Use
  Company Number: US-JNJFOC-20130405930

PATIENT
  Age: 64 Year
  Sex: Female
  Weight: 104.33 kg

DRUGS (10)
  1. LISTERINE MOUTHWASH COOLMINT [Suspect]
     Indication: DENTAL DISORDER PROPHYLAXIS
     Dosage: AROUND ONE-FOURTH TO ONE-THIRD OF A CAPFUL
     Route: 048
     Dates: start: 201208, end: 20130408
  2. PAXIL [Concomitant]
     Indication: MIGRAINE
     Dosage: ALMOST 2 YEARS.
     Route: 065
  3. AMITRIPTYLINE [Concomitant]
     Indication: MIGRAINE
     Dosage: THE LOWEST DOSE SINCE ALMOST 2 YEARS.
     Route: 065
  4. LISINOPRIL [Concomitant]
     Indication: BLOOD PRESSURE
     Dosage: OVER 2 YEARS.
     Route: 065
  5. HYDROCHLOROTHIAZIDE [Concomitant]
     Indication: DIURETIC THERAPY
     Dosage: SINCE 3 YEARS.
     Route: 065
  6. FISH OIL [Concomitant]
     Indication: PROPHYLAXIS
     Dosage: SINCE 10 YEARS.
     Route: 065
  7. VITAMIN C [Concomitant]
     Indication: IMMUNE ENHANCEMENT THERAPY
     Dosage: SINCE 20 YEARS.
     Route: 065
  8. FLAX SEED OIL [Concomitant]
     Indication: PROPHYLAXIS
     Dosage: SINCE 10 YEARS.
     Route: 065
  9. METFORMIN [Concomitant]
     Indication: DIABETES MELLITUS
     Dosage: ONE AND HALF YEARS.
     Route: 065
  10. INSULIN 70/30 [Concomitant]
     Indication: DIABETES MELLITUS
     Dosage: 30 UNITS AND 70 UNITS
     Route: 065

REACTIONS (2)
  - VIIth nerve paralysis [Not Recovered/Not Resolved]
  - Inappropriate schedule of drug administration [Unknown]
